FAERS Safety Report 19589883 (Version 4)
Quarter: 2024Q4

REPORT INFORMATION
  Report Type: Report from Study
  Country: US (occurrence: US)
  Receive Date: 20210721
  Receipt Date: 20241014
  Transmission Date: 20250114
  Serious: Yes (Hospitalization, Other)
  Sender: NOVARTIS
  Company Number: US-002147023-NVSC2021US162519

PATIENT
  Age: 90 Year
  Sex: Female

DRUGS (2)
  1. ENTRESTO [Suspect]
     Active Substance: SACUBITRIL\VALSARTAN
     Indication: Cardiac failure
     Dosage: 49-51 MG, QD
     Route: 048
  2. DOXYCYCLINE [Concomitant]
     Active Substance: DOXYCYCLINE
     Indication: Product used for unknown indication
     Dosage: 100 MG
     Route: 065

REACTIONS (6)
  - Pneumonia [Recovered/Resolved]
  - Postoperative respiratory distress [Unknown]
  - Pneumonitis aspiration [Unknown]
  - Visual impairment [Unknown]
  - Lung infiltration [Unknown]
  - Lung opacity [Unknown]

NARRATIVE: CASE EVENT DATE: 20221014
